FAERS Safety Report 7176554-1 (Version None)
Quarter: 2010Q4

REPORT INFORMATION
  Report Type: 
  Country: None (occurrence: None)
  Receive Date: 20101220
  Receipt Date: 20101216
  Transmission Date: 20110411
  Serious: Yes (Hospitalization, Other)
  Sender: FDA-Public Use
  Company Number: NO-PFIZER INC-2010143486

PATIENT
  Age: 46 Year
  Sex: Female

DRUGS (4)
  1. ZELDOX [Suspect]
     Indication: ANXIETY
     Dosage: 20 MG, 2X/DAY
     Dates: start: 20050101
  2. SOBRIL [Concomitant]
     Indication: ANXIETY
     Dosage: 20 MG, 1X/DAY
  3. SOBRIL [Concomitant]
  4. SOBRIL [Concomitant]
     Indication: INSOMNIA

REACTIONS (13)
  - ALOPECIA [None]
  - ANXIETY [None]
  - APATHY [None]
  - DROOLING [None]
  - FATIGUE [None]
  - FEELING ABNORMAL [None]
  - GASTROINTESTINAL TRACT IRRITATION [None]
  - HYPERVIGILANCE [None]
  - MALAISE [None]
  - PAIN [None]
  - PSYCHIATRIC SYMPTOM [None]
  - URINARY INCONTINENCE [None]
  - WITHDRAWAL SYNDROME [None]
